FAERS Safety Report 13721750 (Version 7)
Quarter: 2018Q1

REPORT INFORMATION
  Report Type: Spontaneous
  Country: AT (occurrence: AT)
  Receive Date: 20170706
  Receipt Date: 20180305
  Transmission Date: 20180508
  Serious: Yes (Life-Threatening, Hospitalization, Other)
  Sender: FDA-Public Use
  Company Number: AT-JNJFOC-20170701513

PATIENT
  Age: 48 Year
  Sex: Male

DRUGS (5)
  1. ZYPADHERA [Suspect]
     Active Substance: OLANZAPINE PAMOATE
     Indication: PSYCHOTIC DISORDER
     Route: 030
     Dates: start: 20170531
  2. ZYPREXA [Suspect]
     Active Substance: OLANZAPINE
     Indication: PSYCHOTIC DISORDER
     Route: 065
     Dates: start: 201606, end: 20170530
  3. AKINETON [Concomitant]
     Active Substance: BIPERIDEN HYDROCHLORIDE
     Route: 048
     Dates: start: 201607, end: 20170607
  4. HALDOL [Suspect]
     Active Substance: HALOPERIDOL
     Indication: PSYCHOTIC SYMPTOM
     Route: 048
     Dates: start: 201606, end: 20170607
  5. PANTOLOC [Concomitant]
     Active Substance: PANTOPRAZOLE SODIUM
     Route: 048
     Dates: end: 20170607

REACTIONS (12)
  - Blood triglycerides increased [Unknown]
  - C-reactive protein increased [Unknown]
  - Drug screen positive [Unknown]
  - Brachial plexopathy [Unknown]
  - Muscular weakness [Unknown]
  - Haemothorax [Unknown]
  - Pulmonary embolism [Recovered/Resolved with Sequelae]
  - Blood uric acid decreased [Unknown]
  - Blood cholesterol increased [Unknown]
  - Blood fibrinogen increased [Unknown]
  - Blood glucose increased [Unknown]
  - Leukocytosis [Unknown]

NARRATIVE: CASE EVENT DATE: 20170607
